FAERS Safety Report 17949880 (Version 1)
Quarter: 2020Q2

REPORT INFORMATION
  Report Type: Spontaneous
  Country: CZ (occurrence: CZ)
  Receive Date: 20200626
  Receipt Date: 20200626
  Transmission Date: 20200714
  Serious: Yes (Other)
  Sender: FDA-Public Use
  Company Number: CZ-FRESENIUS KABI-FK202006425

PATIENT
  Age: 62 Year
  Sex: Male

DRUGS (1)
  1. PACLITAXEL (MANUFACTURER UNKNOWN) [Suspect]
     Active Substance: PACLITAXEL
     Indication: SQUAMOUS CELL CARCINOMA
     Dosage: 1 TIME A WEEK, 19 DOSES
     Route: 065
     Dates: end: 200710

REACTIONS (2)
  - Paraesthesia [Unknown]
  - Weight decreased [Unknown]
